FAERS Safety Report 6044396-6 (Version None)
Quarter: 2009Q1

REPORT INFORMATION
  Report Type: 
  Country: None (occurrence: None)
  Receive Date: 20090120
  Receipt Date: 20081209
  Transmission Date: 20090719
  Serious: No
  Sender: FDA-Public Use
  Company Number: US-BAYER-200814828BCC

PATIENT
  Age: 67 Year
  Sex: Female
  Weight: 71 kg

DRUGS (3)
  1. ALEVE (CAPLET) [Suspect]
     Indication: ARTHRALGIA
     Dosage: TOTAL DAILY DOSE: 440 MG  UNIT DOSE: 220 MG
     Dates: start: 20081130, end: 20081207
  2. ALEVE (CAPLET) [Suspect]
     Dates: start: 20081209
  3. LIPITOR [Concomitant]

REACTIONS (1)
  - NAUSEA [None]
